FAERS Safety Report 17907102 (Version 1)
Quarter: 2020Q2

REPORT INFORMATION
  Report Type: Other
  Country: US (occurrence: US)
  Receive Date: 20200617
  Receipt Date: 20200617
  Transmission Date: 20200714
  Serious: Yes (Other)
  Sender: FDA-Public Use
  Company Number: US-ORCHID HEALTHCARE-2086022

PATIENT
  Age: 70 Year
  Sex: Female

DRUGS (2)
  1. LACOSAMIDE. [Concomitant]
     Active Substance: LACOSAMIDE
     Route: 065
  2. LEVETIRACETAM. [Suspect]
     Active Substance: LEVETIRACETAM
     Indication: SEIZURE
     Route: 065

REACTIONS (3)
  - Intrusive thoughts [Recovered/Resolved]
  - Violence-related symptom [Recovered/Resolved]
  - Homicidal ideation [Recovered/Resolved]
